FAERS Safety Report 6610547-5 (Version None)
Quarter: 2010Q1

REPORT INFORMATION
  Report Type: 
  Country: None (occurrence: None)
  Receive Date: 20100302
  Receipt Date: 20100217
  Transmission Date: 20100710
  Serious: Yes (Other)
  Sender: FDA-Public Use
  Company Number: US-PFIZER INC-2010013874

PATIENT
  Sex: Male
  Weight: 72.56 kg

DRUGS (3)
  1. GEODON [Suspect]
     Dosage: 80 MG, 2X/DAY
     Route: 048
     Dates: end: 20090629
  2. ZOLOFT [Suspect]
     Indication: BIPOLAR DISORDER
     Dosage: 100 MG, 1X/DAY
     Route: 048
     Dates: end: 20090101
  3. ZOLOFT [Suspect]
     Indication: POST-TRAUMATIC STRESS DISORDER

REACTIONS (8)
  - ANXIETY [None]
  - BLOOD CHOLESTEROL INCREASED [None]
  - FEAR [None]
  - INSOMNIA [None]
  - NONSPECIFIC REACTION [None]
  - PAIN [None]
  - SEROTONIN SYNDROME [None]
  - VICTIM OF CRIME [None]
